APPROVED DRUG PRODUCT: ELMIRON
Active Ingredient: PENTOSAN POLYSULFATE SODIUM
Strength: 100MG
Dosage Form/Route: CAPSULE;ORAL
Application: N020193 | Product #001
Applicant: JANSSEN PHARMACEUTICALS INC
Approved: Sep 26, 1996 | RLD: Yes | RS: Yes | Type: RX